FAERS Safety Report 17300719 (Version 1)
Quarter: 2020Q1

REPORT INFORMATION
  Report Type: Spontaneous
  Country: US (occurrence: US)
  Receive Date: 20200122
  Receipt Date: 20200122
  Transmission Date: 20200409
  Serious: No
  Sender: FDA-Public Use
  Company Number: US-ALLERGAN-1951981US

PATIENT
  Age: 98 Year
  Sex: Female

DRUGS (4)
  1. LOTEPREDNOL [Concomitant]
     Active Substance: LOTEPREDNOL
     Indication: GLAUCOMA
     Route: 047
  2. LEVOTHYROXINE. [Concomitant]
     Active Substance: LEVOTHYROXINE
     Indication: THYROID DISORDER
     Dosage: UNK
  3. RESTASIS [Suspect]
     Active Substance: CYCLOSPORINE
     Indication: DRY EYE
     Dosage: 2 GTT, BID
     Route: 047
  4. LATANOPROST. [Concomitant]
     Active Substance: LATANOPROST
     Indication: GLAUCOMA
     Dosage: UNK, QD, ONCE DAILY
     Route: 047

REACTIONS (7)
  - Incorrect dose administered by device [Unknown]
  - Product expiration date issue [Unknown]
  - Product dropper issue [Unknown]
  - Product dose omission [Unknown]
  - Product container issue [Unknown]
  - Product label confusion [Unknown]
  - Product physical consistency issue [Unknown]

NARRATIVE: CASE EVENT DATE: 201912
